FAERS Safety Report 4997508-7 (Version None)
Quarter: 2006Q1

REPORT INFORMATION
  Report Type: 
  Country: None (occurrence: None)
  Receive Date: 20060315
  Receipt Date: 20051209
  Transmission Date: 20060701
  Serious: Yes (Other)
  Sender: FDA-Public Use
  Company Number: 428295

PATIENT
  Age: 58 Year
  Sex: Female

DRUGS (1)
  1. BONIVA [Suspect]
     Indication: DRUG USE FOR UNKNOWN INDICATION
     Dosage: ORAL
     Route: 048

REACTIONS (1)
  - BONE PAIN [None]
